FAERS Safety Report 8598943-0 (Version None)
Quarter: 2012Q3

REPORT INFORMATION
  Report Type: 
  Country: None (occurrence: None)
  Receive Date: 20120806
  Receipt Date: 20120806
  Transmission Date: 20120928
  Serious: Yes (Life-Threatening, Hospitalization)
  Sender: FDA-Public Use
  Company Number: None

PATIENT
  Age: 56 Year
  Sex: Male
  Weight: 75.8 kg

DRUGS (1)
  1. XOLAIR [Suspect]
     Indication: ASTHMA
     Dosage: 300MG ONCE EVERY 28 DAYS SQ
     Route: 058
     Dates: start: 20110315, end: 20120803

REACTIONS (2)
  - MENINGITIS CRYPTOCOCCAL [None]
  - HYPONATRAEMIA [None]
